FAERS Safety Report 7318928-1 (Version None)
Quarter: 2011Q1

REPORT INFORMATION
  Report Type: 
  Country: None (occurrence: None)
  Receive Date: 20110228
  Receipt Date: 20110215
  Transmission Date: 20110831
  Serious: Yes (Hospitalization, Other)
  Sender: FDA-Public Use
  Company Number: FR-ELI_LILLY_AND_COMPANY-FR201102004269

PATIENT
  Age: 34 Year
  Sex: Male

DRUGS (6)
  1. CYMBALTA [Suspect]
     Dosage: 120 MG, DAILY (1/D)
     Route: 048
     Dates: start: 20110202
  2. ESPERAL [Concomitant]
     Indication: ALCOHOL WITHDRAWAL SYNDROME
  3. NORSET [Concomitant]
  4. CYMBALTA [Suspect]
     Indication: DEPRESSION
     Dosage: 90 MG, DAILY (1/D)
     Route: 048
  5. NEXIUM [Concomitant]
  6. LEVOTHYROX [Concomitant]
     Indication: HYPOTHYROIDISM

REACTIONS (3)
  - HAEMATOMA [None]
  - HEMICEPHALALGIA [None]
  - CAROTID ARTERY DISSECTION [None]
